FAERS Safety Report 6233085-0 (Version None)
Quarter: 2009Q2

REPORT INFORMATION
  Report Type: 
  Country: None (occurrence: None)
  Receive Date: 20090616
  Receipt Date: 20090616
  Transmission Date: 20091009
  Serious: No
  Sender: FDA-Public Use
  Company Number: None

PATIENT
  Age: 64 Year
  Sex: Male
  Weight: 64.27 kg

DRUGS (1)
  1. FLUOROURACIL [Suspect]
     Dosage: 2772 MG EVERY DAY IV
     Route: 042
     Dates: start: 20090402, end: 20090403

REACTIONS (3)
  - DIARRHOEA [None]
  - HYPOPHAGIA [None]
  - STOMATITIS [None]
